FAERS Safety Report 14870283 (Version 1)
Quarter: 2018Q2

REPORT INFORMATION
  Report Type: Spontaneous
  Country: US (occurrence: US)
  Receive Date: 20180509
  Receipt Date: 20180509
  Transmission Date: 20180711
  Serious: No
  Sender: FDA-Public Use
  Company Number: US-SA-2018SA087005

PATIENT
  Age: 59 Year
  Sex: Female
  Weight: 143 kg

DRUGS (3)
  1. LEVOCETIRIZINE [Suspect]
     Active Substance: LEVOCETIRIZINE
     Indication: SINUS DISORDER
     Dosage: FREQUENCY-EVERY EVENING
     Route: 048
     Dates: start: 20180307, end: 20180319
  2. LEVOCETIRIZINE [Suspect]
     Active Substance: LEVOCETIRIZINE
     Indication: HYPERSENSITIVITY
     Dosage: FREQUENCY-EVERY EVENING
     Route: 048
     Dates: start: 20180307, end: 20180319
  3. LEVOCETIRIZINE [Suspect]
     Active Substance: LEVOCETIRIZINE
     Indication: RHINORRHOEA
     Dosage: FREQUENCY-EVERY EVENING
     Route: 048
     Dates: start: 20180307, end: 20180319

REACTIONS (2)
  - Migraine [Recovered/Resolved]
  - Nausea [Unknown]

NARRATIVE: CASE EVENT DATE: 20180312
